FAERS Safety Report 6826657-3 (Version None)
Quarter: 2010Q3

REPORT INFORMATION
  Report Type: 
  Country: None (occurrence: None)
  Receive Date: 20100709
  Receipt Date: 20100629
  Transmission Date: 20110219
  Serious: Yes (Hospitalization)
  Sender: FDA-Public Use
  Company Number: SE-PFIZER INC-2010080746

PATIENT
  Age: 24 Year
  Sex: Female

DRUGS (2)
  1. LYRICA [Suspect]
     Dosage: 225 MG, UNK
     Route: 048
     Dates: start: 20091210, end: 20091210
  2. CITALOPRAM [Concomitant]
     Indication: DEPRESSION
     Dosage: 20 MG, DAILY

REACTIONS (2)
  - CONVULSION [None]
  - INTENTIONAL DRUG MISUSE [None]
